FAERS Safety Report 4641149-8 (Version None)
Quarter: 2005Q2

REPORT INFORMATION
  Report Type: 
  Country: None (occurrence: None)
  Receive Date: 20050421
  Receipt Date: 20050412
  Transmission Date: 20051028
  Serious: Yes (Other)
  Sender: FDA-Public Use
  Company Number: JP-BRISTOL-MYERS SQUIBB COMPANY-12930327

PATIENT
  Age: 46 Year
  Sex: Male

DRUGS (10)
  1. RESLIN [Suspect]
     Indication: DEPRESSION
     Route: 048
     Dates: end: 20050311
  2. QUAZEPAM [Suspect]
     Indication: INSOMNIA
     Route: 048
     Dates: start: 20010101, end: 20050311
  3. ZOLPIDEM TARTRATE [Suspect]
     Indication: INSOMNIA
     Route: 048
     Dates: start: 20010601, end: 20050311
  4. MILNACIPRAN [Suspect]
     Route: 048
     Dates: start: 20010101, end: 20050311
  5. RABEPRAZOLE SODIUM [Suspect]
     Indication: OESOPHAGITIS
     Route: 048
     Dates: start: 20030301, end: 20050311
  6. TELITHROMYCIN [Suspect]
     Route: 048
     Dates: start: 20050101, end: 20050311
  7. ETIZOLAM [Suspect]
     Route: 048
  8. LORAZEPAM [Suspect]
     Route: 048
  9. ALPRAZOLAM [Suspect]
     Route: 048
  10. SULPIRIDE [Suspect]
     Route: 048

REACTIONS (4)
  - ALANINE AMINOTRANSFERASE INCREASED [None]
  - ASPARTATE AMINOTRANSFERASE INCREASED [None]
  - BLOOD CHOLESTEROL INCREASED [None]
  - LIVER DISORDER [None]
